FAERS Safety Report 4600114-7 (Version None)
Quarter: 2005Q1

REPORT INFORMATION
  Report Type: 
  Country: None (occurrence: None)
  Receive Date: 20050303
  Receipt Date: 20050217
  Transmission Date: 20050727
  Serious: Yes (Hospitalization, Other)
  Sender: FDA-Public Use
  Company Number: 200501496

PATIENT
  Age: 55 Year
  Sex: Female
  Weight: 78 kg

DRUGS (4)
  1. BOTULINUM TOXIN TYPE A [Suspect]
     Indication: CERVICAL ROOT PAIN
     Dosage: 100 UNITS ONCE IM
     Route: 030
  2. BUPIVACAINE [Suspect]
     Indication: CERVICAL ROOT PAIN
     Dosage: 50 MG ONCE IM
     Route: 030
  3. LITHIUM [Concomitant]
  4. UNSPECIFIED MONOAMINE OXIDASE [Concomitant]

REACTIONS (9)
  - APHONIA [None]
  - CERVICAL ROOT PAIN [None]
  - DRUG INTERACTION [None]
  - DYSPHONIA [None]
  - HYPOTENSION [None]
  - INFUSION RELATED REACTION [None]
  - MUSCULOSKELETAL STIFFNESS [None]
  - RESPIRATORY ARREST [None]
  - RESPIRATORY DEPRESSION [None]
